FAERS Safety Report 4760234-3 (Version None)
Quarter: 2005Q3

REPORT INFORMATION
  Report Type: 
  Country: None (occurrence: None)
  Receive Date: 20050902
  Receipt Date: 20050826
  Transmission Date: 20060218
  Serious: Yes (Other)
  Sender: FDA-Public Use
  Company Number: US-JNJFOC-20050806006

PATIENT
  Sex: Female

DRUGS (2)
  1. IMODIUM A-D [Suspect]
  2. IMODIUM A-D [Suspect]

REACTIONS (3)
  - DEPENDENCE [None]
  - DRUG ADMINISTRATION ERROR [None]
  - INTENTIONAL MISUSE [None]
